FAERS Safety Report 10009019 (Version 2)
Quarter: 2014Q1

REPORT INFORMATION
  Report Type: Spontaneous
  Country: US (occurrence: US)
  Receive Date: 20140313
  Receipt Date: 20140313
  Transmission Date: 20141002
  Serious: No
  Sender: FDA-Public Use
  Company Number: US-INCYTE CORPORATION-2012IN000880

PATIENT
  Age: 81 Year
  Sex: Female
  Weight: 58.96 kg

DRUGS (13)
  1. JAKAFI [Suspect]
     Indication: MYELOFIBROSIS
     Dosage: 15 MG, BID
     Route: 048
     Dates: start: 20120127
  2. PRILOSEC [Concomitant]
  3. LISINOPRIL [Concomitant]
  4. DIOVAN [Concomitant]
  5. METOPROLOL [Concomitant]
  6. WARFARIN [Concomitant]
  7. GABAPENTIN [Concomitant]
  8. LORAZEPAM [Concomitant]
  9. HYDROCODONE W/ACETAMINOPHEN [Concomitant]
  10. LASIX [Concomitant]
  11. MICRO K [Concomitant]
  12. MECLIZINE [Concomitant]
  13. BELLADONNA TINCTURE [Concomitant]

REACTIONS (3)
  - Arthralgia [Not Recovered/Not Resolved]
  - Diarrhoea [Not Recovered/Not Resolved]
  - Abdominal pain [Not Recovered/Not Resolved]
